FAERS Safety Report 9713518 (Version 4)
Quarter: 2014Q1

REPORT INFORMATION
  Report Type: Report from Study
  Country: CZ (occurrence: CZ)
  Receive Date: 20131126
  Receipt Date: 20140303
  Transmission Date: 20141002
  Serious: Yes (Other)
  Sender: FDA-Public Use
  Company Number: CZ-BAXTER-2013BAX046067

PATIENT
  Age: 36 Year
  Sex: Female

DRUGS (4)
  1. EXTRANEAL [Suspect]
     Indication: RENAL FAILURE
     Route: 033
     Dates: end: 20140126
  2. EXTRANEAL [Suspect]
     Indication: PERITONEAL DIALYSIS
  3. PHYSIONEAL 40 GLUCOSE 1,36% W/V / 13,6 MG/ML [Suspect]
     Indication: RENAL FAILURE
     Route: 033
     Dates: end: 20140126
  4. PHYSIONEAL 40 GLUCOSE 1,36% W/V / 13,6 MG/ML [Suspect]
     Indication: PERITONEAL DIALYSIS

REACTIONS (2)
  - Pseudomonas infection [Not Recovered/Not Resolved]
  - Catheter site infection [Not Recovered/Not Resolved]
